FAERS Safety Report 17734044 (Version 1)
Quarter: 2020Q2

REPORT INFORMATION
  Report Type: Spontaneous
  Country: FR (occurrence: FR)
  Receive Date: 20200501
  Receipt Date: 20200501
  Transmission Date: 20200714
  Serious: Yes (Hospitalization)
  Sender: FDA-Public Use
  Company Number: FR-PFIZER INC-2020171151

PATIENT
  Age: 97 Year
  Sex: Female
  Weight: 46 kg

DRUGS (2)
  1. DALACINE [Suspect]
     Active Substance: CLINDAMYCIN
     Indication: DERMO-HYPODERMITIS
     Dosage: 600 MG, 3X/DAY (EVERY 8H)
     Route: 048
     Dates: start: 20200306, end: 20200310
  2. CEFEPIME [Suspect]
     Active Substance: CEFEPIME HYDROCHLORIDE
     Indication: DERMO-HYPODERMITIS
     Dosage: 2 G, 2X/DAY
     Route: 042
     Dates: start: 20200306, end: 20200310

REACTIONS (3)
  - Myoclonus [Recovered/Resolved]
  - Encephalopathy [Recovered/Resolved]
  - Confusional state [Recovered/Resolved]

NARRATIVE: CASE EVENT DATE: 20200309
